FAERS Safety Report 7104620-5 (Version None)
Quarter: 2010Q4

REPORT INFORMATION
  Report Type: 
  Country: None (occurrence: None)
  Receive Date: 20101109
  Receipt Date: 20101027
  Transmission Date: 20110411
  Serious: Yes (Hospitalization)
  Sender: FDA-Public Use
  Company Number: 011041

PATIENT
  Age: 81 Year
  Sex: Female
  Weight: 55 kg

DRUGS (6)
  1. PLETAL [Suspect]
     Indication: CEREBROVASCULAR DISORDER
     Dosage: 100 MG, BID, ORAL
     Route: 048
     Dates: start: 20100713, end: 20100913
  2. ASPIRIN [Concomitant]
  3. BLOPRESS (CANDESARTAN CILEXETIL) TABLET [Concomitant]
  4. SELBEX (TEPRENONE) [Concomitant]
  5. NORVASC OD (AMLODIPINE BESILATE) ORODISPERSIBLE TABLET [Concomitant]
  6. ALLEGRA (FEXOFENADINE HYDROCHLORIDE) TABLET [Concomitant]

REACTIONS (2)
  - EOSINOPHIL COUNT INCREASED [None]
  - RASH [None]
